FAERS Safety Report 23431864 (Version 1)
Quarter: 2024Q1

REPORT INFORMATION
  Report Type: Spontaneous
  Country: US (occurrence: US)
  Receive Date: 20240123
  Receipt Date: 20240123
  Transmission Date: 20240409
  Serious: Yes (Hospitalization, Other)
  Sender: FDA-Public Use
  Company Number: US-SA-SAC20240122000106

PATIENT
  Sex: Female
  Weight: 118 kg

DRUGS (2)
  1. DUPIXENT [Suspect]
     Active Substance: DUPILUMAB
     Indication: Nasal polyps
     Dosage: 300 MG, QOW
     Route: 058
  2. OZEMPIC [Concomitant]
     Active Substance: SEMAGLUTIDE
     Dosage: OZEMPIC 0.25 OR .5 PEN INJCTR

REACTIONS (3)
  - Sepsis [Unknown]
  - Gallbladder operation [Unknown]
  - Staphylococcal infection [Unknown]
